FAERS Safety Report 16780554 (Version 3)
Quarter: 2019Q4

REPORT INFORMATION
  Report Type: Spontaneous
  Country: US (occurrence: US)
  Receive Date: 20190906
  Receipt Date: 20191121
  Transmission Date: 20200122
  Serious: No
  Sender: FDA-Public Use
  Company Number: US-ARRAY-2019-06254

PATIENT

DRUGS (4)
  1. MEKTOVI [Suspect]
     Active Substance: BINIMETINIB
     Indication: MALIGNANT MELANOMA
     Dosage: 45 MG, BID
     Route: 048
     Dates: start: 20190725
  2. BRAFTOVI [Suspect]
     Active Substance: ENCORAFENIB
     Indication: MALIGNANT MELANOMA
     Dosage: 450 MG, QD
     Route: 048
     Dates: start: 20190725
  3. MEKTOVI [Suspect]
     Active Substance: BINIMETINIB
     Dosage: 30 MIG, BID
     Route: 048
  4. BRAFTOVI [Suspect]
     Active Substance: ENCORAFENIB
     Dosage: 300 UNK
     Route: 048

REACTIONS (10)
  - Pain in extremity [Unknown]
  - Peripheral swelling [Unknown]
  - Influenza like illness [Unknown]
  - Fatigue [Not Recovered/Not Resolved]
  - Pyrexia [Unknown]
  - Arthralgia [Unknown]
  - Joint swelling [Unknown]
  - Unevaluable event [Not Recovered/Not Resolved]
  - Pruritus [Unknown]
  - Chills [Unknown]
